FAERS Safety Report 7953600-6 (Version None)
Quarter: 2011Q4

REPORT INFORMATION
  Report Type: 
  Country: None (occurrence: None)
  Receive Date: 20111202
  Receipt Date: 20111121
  Transmission Date: 20120403
  Serious: Yes (Hospitalization)
  Sender: FDA-Public Use
  Company Number: FR-JNJFOC-20111110031

PATIENT
  Sex: Male
  Weight: 46.8 kg

DRUGS (3)
  1. REMICADE [Suspect]
     Indication: CROHN'S DISEASE
     Route: 042
     Dates: start: 20090403
  2. REMICADE [Suspect]
     Route: 042
     Dates: start: 20110531, end: 20110531
  3. GROWTH HORMONE [Concomitant]

REACTIONS (1)
  - CROHN'S DISEASE [None]
